FAERS Safety Report 16219098 (Version 2)
Quarter: 2019Q2

REPORT INFORMATION
  Report Type: Spontaneous
  Country: CO (occurrence: CO)
  Receive Date: 20190419
  Receipt Date: 20190520
  Transmission Date: 20190711
  Serious: Yes (Death)
  Sender: FDA-Public Use
  Company Number: CO-ASTRAZENECA-2019SE60208

PATIENT
  Age: 87 Year
  Sex: Female

DRUGS (5)
  1. SYMBICORT [Suspect]
     Active Substance: BUDESONIDE\FORMOTEROL FUMARATE DIHYDRATE
     Indication: BRONCHOSPASM
     Dosage: 160/4.5 MCG/DOSE 2 INHALATION EVERY 12 HOURS
     Route: 055
  2. HYZAAR [Concomitant]
     Active Substance: HYDROCHLOROTHIAZIDE\LOSARTAN POTASSIUM
     Route: 058
  3. INSULIN [Concomitant]
     Active Substance: INSULIN NOS
     Route: 058
  4. PREGABALIN. [Concomitant]
     Active Substance: PREGABALIN
     Route: 058
  5. OXYGEN. [Concomitant]
     Active Substance: OXYGEN
     Route: 058

REACTIONS (1)
  - Death [Fatal]
